FAERS Safety Report 25365783 (Version 1)
Quarter: 2025Q2

REPORT INFORMATION
  Report Type: Report from Study
  Country: GB (occurrence: GB)
  Receive Date: 20250528
  Receipt Date: 20250528
  Transmission Date: 20250716
  Serious: Yes (Other)
  Sender: ABBVIE
  Company Number: GB-ABBVIE-6293741

PATIENT
  Age: 59 Year
  Sex: Male

DRUGS (1)
  1. SKYRIZI [Suspect]
     Active Substance: RISANKIZUMAB-RZAA
     Indication: Psoriasis
     Dosage: SKYRIZI 150MG/1ML?DOSE FROM- SOLUTION FOR INJECTION IN PRE-FILLED PEN
     Route: 058
     Dates: end: 2025

REACTIONS (3)
  - Sclerotherapy [Recovering/Resolving]
  - Psoriasis [Unknown]
  - Psoriasis [Recovered/Resolved]

NARRATIVE: CASE EVENT DATE: 20250501
